FAERS Safety Report 11646490 (Version 2)
Quarter: 2016Q2

REPORT INFORMATION
  Report Type: Spontaneous
  Country: US (occurrence: US)
  Receive Date: 20151020
  Receipt Date: 20160429
  Transmission Date: 20160815
  Serious: Yes (Other)
  Sender: FDA-Public Use
  Company Number: US-ROCHE-1624327

PATIENT
  Age: 71 Year
  Sex: Male

DRUGS (2)
  1. ESBRIET [Suspect]
     Active Substance: PIRFENIDONE
     Indication: IDIOPATHIC PULMONARY FIBROSIS
     Dosage: THERAPY INTERRUPTED
     Route: 048
     Dates: start: 20150323, end: 201505
  2. ESBRIET [Suspect]
     Active Substance: PIRFENIDONE
     Dosage: THERAPY RESTARTED
     Route: 048
     Dates: start: 201506, end: 20150821

REACTIONS (2)
  - Rash [Recovered/Resolved]
  - Skin discolouration [Unknown]

NARRATIVE: CASE EVENT DATE: 201505
